FAERS Safety Report 6213567-8 (Version None)
Quarter: 2009Q2

REPORT INFORMATION
  Report Type: 
  Country: None (occurrence: None)
  Receive Date: 20090603
  Receipt Date: 20090520
  Transmission Date: 20091009
  Serious: Yes (Other)
  Sender: FDA-Public Use
  Company Number: DE-MYLANLABS-2009S1008971

PATIENT
  Age: 52 Year
  Sex: Female

DRUGS (7)
  1. SERTRALIN DURA [Suspect]
     Indication: DRUG USE FOR UNKNOWN INDICATION
  2. SERTRALIN DURA [Suspect]
  3. SERTRALIN DURA [Suspect]
  4. SOTALOL HYDROCHLORIDE [Concomitant]
     Indication: HYPERTENSION
  5. BISOPROLOL [Concomitant]
     Indication: HYPERTENSION
  6. TILIDIN [Concomitant]
     Indication: BACK PAIN
  7. DOMPERIDONE [Concomitant]
     Indication: DRUG USE FOR UNKNOWN INDICATION

REACTIONS (5)
  - ANXIETY [None]
  - HYPERTENSION [None]
  - OEDEMA [None]
  - TACHYCARDIA [None]
  - VISUAL IMPAIRMENT [None]
